FAERS Safety Report 9682628 (Version 2)
Quarter: 2014Q1

REPORT INFORMATION
  Report Type: Spontaneous
  Country: DE (occurrence: DE)
  Receive Date: 20131112
  Receipt Date: 20140108
  Transmission Date: 20141002
  Serious: Yes (Other)
  Sender: FDA-Public Use
  Company Number: DE-AMGEN-DEUSP2013079244

PATIENT
  Age: 71 Year
  Sex: Female

DRUGS (3)
  1. ENBREL [Suspect]
     Indication: RHEUMATOID ARTHRITIS
     Dosage: 50 MG, WEEKLY
     Route: 058
     Dates: start: 20130619
  2. MTX                                /00113802/ [Concomitant]
     Dosage: 12.5 MG, UNK
  3. PREDNISOLON                        /00016201/ [Concomitant]
     Dosage: UNK

REACTIONS (2)
  - Pulmonary embolism [Not Recovered/Not Resolved]
  - Pneumonia [Not Recovered/Not Resolved]
